FAERS Safety Report 9685630 (Version 1)
Quarter: 2013Q4

REPORT INFORMATION
  Report Type: Spontaneous
  Country: US (occurrence: US)
  Receive Date: 20131113
  Receipt Date: 20131113
  Transmission Date: 20140711
  Serious: No
  Sender: FDA-Public Use
  Company Number: US-GLAXOSMITHKLINE-A1022859A

PATIENT
  Age: 64 Year
  Sex: Female

DRUGS (8)
  1. CARVEDILOL [Suspect]
     Indication: LEFT VENTRICULAR DYSFUNCTION
     Dosage: 12.5MG TWICE PER DAY
     Route: 048
     Dates: start: 2012
  2. PLAVIX [Concomitant]
  3. PROTONIX [Concomitant]
  4. INSULIN LANTUS [Concomitant]
  5. NOVOLOG INSULIN [Concomitant]
  6. FUROSEMIDE [Concomitant]
  7. SPIRONOLACTONE [Concomitant]
  8. ZOCOR [Concomitant]

REACTIONS (1)
  - Malaise [Recovered/Resolved]
